FAERS Safety Report 23994065 (Version 1)
Quarter: 2024Q2

REPORT INFORMATION
  Report Type: Spontaneous
  Country: US (occurrence: None)
  Receive Date: 20240618
  Receipt Date: 20240618
  Transmission Date: 20240715
  Serious: No
  Sender: FDA-Public Use
  Company Number: None

PATIENT
  Age: 46 Year
  Sex: Female

DRUGS (1)
  1. MIEBO [Suspect]
     Active Substance: PERFLUOROHEXYLOCTANE
     Dosage: 1 GTT DROP 4 TIMES A DAY OPHTHALMIC
     Route: 047
     Dates: start: 20240611

REACTIONS (3)
  - Ocular hyperaemia [None]
  - Eye swelling [None]
  - Photophobia [None]

NARRATIVE: CASE EVENT DATE: 20240618
